FAERS Safety Report 13741412 (Version 5)
Quarter: 2018Q1

REPORT INFORMATION
  Report Type: Report from Study
  Country: None (occurrence: US)
  Receive Date: 20170711
  Receipt Date: 20180131
  Transmission Date: 20180508
  Serious: Yes (Other)
  Sender: FDA-Public Use
  Company Number: US-ABBVIE-17K-163-2028802-00

PATIENT
  Age: 59 Year
  Sex: Female

DRUGS (4)
  1. HUMIRA [Suspect]
     Active Substance: ADALIMUMAB
     Indication: CROHN^S DISEASE
     Route: 058
     Dates: start: 20160406
  2. HUMIRA [Suspect]
     Active Substance: ADALIMUMAB
     Route: 058
  3. IMURAN [Concomitant]
     Active Substance: AZATHIOPRINE
     Indication: PRODUCT USED FOR UNKNOWN INDICATION
     Dosage: ONE HALF TABLETS 50 MG EACH FOR A TOTAL OF 175 MG PER DAY
  4. METHOTREXATE. [Suspect]
     Active Substance: METHOTREXATE
     Indication: PRODUCT USED FOR UNKNOWN INDICATION
     Route: 065

REACTIONS (17)
  - Fall [Recovering/Resolving]
  - Diabetes mellitus [Unknown]
  - Gastrointestinal inflammation [Recovering/Resolving]
  - Drug effect incomplete [Unknown]
  - Cataplexy [Unknown]
  - Weight fluctuation [Unknown]
  - Gastrointestinal motility disorder [Not Recovered/Not Resolved]
  - Incorrect dose administered [Unknown]
  - Abdominal pain [Not Recovered/Not Resolved]
  - Loss of consciousness [Not Recovered/Not Resolved]
  - Systemic lupus erythematosus [Unknown]
  - Defaecation urgency [Unknown]
  - Narcolepsy [Unknown]
  - Drug hypersensitivity [Unknown]
  - Fibromyalgia [Unknown]
  - Muscle spasms [Not Recovered/Not Resolved]
  - Headache [Not Recovered/Not Resolved]

NARRATIVE: CASE EVENT DATE: 20160406
